FAERS Safety Report 12964573 (Version 1)
Quarter: 2016Q4

REPORT INFORMATION
  Report Type: Report from Study
  Country: US (occurrence: US)
  Receive Date: 20161122
  Receipt Date: 20161122
  Transmission Date: 20170207
  Serious: Yes (Other)
  Sender: FDA-Public Use
  Company Number: PHEH2016US029967

PATIENT
  Sex: Male

DRUGS (1)
  1. ENTRESTO [Suspect]
     Active Substance: SACUBITRIL\VALSARTAN
     Indication: PRODUCT USED FOR UNKNOWN INDICATION
     Dosage: 200 MG, BID
     Route: 065

REACTIONS (8)
  - Gout [Unknown]
  - Urine abnormality [Unknown]
  - Device malfunction [Unknown]
  - Dysphonia [Unknown]
  - Urine odour abnormal [Unknown]
  - Dry mouth [Unknown]
  - Dizziness [Unknown]
  - Blood pressure increased [Unknown]
